FAERS Safety Report 24578389 (Version 1)
Quarter: 2024Q4

REPORT INFORMATION
  Report Type: Spontaneous
  Country: US (occurrence: US)
  Receive Date: 20241105
  Receipt Date: 20241105
  Transmission Date: 20250114
  Serious: Yes (Other)
  Sender: NOVO NORDISK
  Company Number: US-NOVOPROD-1308423

PATIENT
  Age: 70 Year

DRUGS (1)
  1. WEGOVY [Suspect]
     Active Substance: SEMAGLUTIDE
     Indication: Weight control
     Dosage: UNKNOWN
     Route: 058
     Dates: start: 20241001, end: 20241013

REACTIONS (12)
  - Diverticulitis [Recovering/Resolving]
  - Feeding disorder [Recovering/Resolving]
  - Asthenia [Recovering/Resolving]
  - Nausea [Recovering/Resolving]
  - Dizziness [Recovering/Resolving]
  - Unevaluable event [Recovering/Resolving]
  - Haemoglobin increased [Recovering/Resolving]
  - Haematocrit increased [Recovering/Resolving]
  - Blood glucose increased [Recovering/Resolving]
  - Aspartate aminotransferase increased [Recovering/Resolving]
  - Alanine aminotransferase increased [Recovering/Resolving]
  - Carbon dioxide increased [Recovering/Resolving]
